FAERS Safety Report 15085314 (Version 8)
Quarter: 2019Q1

REPORT INFORMATION
  Report Type: Report from Study
  Country: CA (occurrence: CA)
  Receive Date: 20180628
  Receipt Date: 20190314
  Transmission Date: 20190417
  Serious: Yes (Other)
  Sender: FDA-Public Use
  Company Number: PHHY2018CA031728

PATIENT
  Age: 55 Year
  Sex: Female

DRUGS (4)
  1. ENBREL [Concomitant]
     Active Substance: ETANERCEPT
     Indication: PRODUCT USED FOR UNKNOWN INDICATION
     Route: 065
  2. ILARIS [Suspect]
     Active Substance: CANAKINUMAB
     Dosage: 150 MG, EVERY 8 WEEKS
     Route: 058
     Dates: start: 20180821
  3. ILARIS [Suspect]
     Active Substance: CANAKINUMAB
     Dosage: 150 MG, EVERY 8 WEEKS
     Route: 058
     Dates: start: 20181121
  4. ILARIS [Suspect]
     Active Substance: CANAKINUMAB
     Indication: FAMILIAL MEDITERRANEAN FEVER
     Dosage: 150 MG, EVERY 8 WEEKS
     Route: 058
     Dates: start: 20180504

REACTIONS (16)
  - Pyrexia [Recovered/Resolved]
  - Skin plaque [Recovered/Resolved]
  - Nausea [Recovered/Resolved]
  - Oedema peripheral [Recovering/Resolving]
  - Familial mediterranean fever [Unknown]
  - Sensitive skin [Unknown]
  - Cellulitis [Unknown]
  - Pyrexia [Recovered/Resolved]
  - Condition aggravated [Unknown]
  - Fatigue [Unknown]
  - Asthenia [Unknown]
  - Pain in extremity [Unknown]
  - Drug ineffective [Not Recovered/Not Resolved]
  - Erythema [Recovered/Resolved]
  - Headache [Recovered/Resolved]
  - Body temperature decreased [Unknown]

NARRATIVE: CASE EVENT DATE: 2018
